FAERS Safety Report 9038489 (Version 1)
Quarter: 2013Q1

REPORT INFORMATION
  Report Type: Report from Study
  Country: US (occurrence: US)
  Receive Date: 20130129
  Receipt Date: 20130129
  Transmission Date: 20140127
  Serious: Yes (Other)
  Sender: FDA-Public Use
  Company Number: US-ABBOTT-12P-163-0935014-00

PATIENT
  Age: 40 Year
  Sex: Female

DRUGS (3)
  1. HUMIRA 40 MG/0.8 ML PEN [Suspect]
     Indication: CROHN^S DISEASE
  2. COUMADIN [Concomitant]
     Indication: DEEP VEIN THROMBOSIS
  3. BETAMETHASONE [Concomitant]
     Indication: SEASONAL ALLERGY

REACTIONS (2)
  - Crohn^s disease [Unknown]
  - Abdominal pain [Unknown]
